FAERS Safety Report 5718275-5 (Version None)
Quarter: 2008Q2

REPORT INFORMATION
  Report Type: 
  Country: None (occurrence: None)
  Receive Date: 20080425
  Receipt Date: 20071213
  Transmission Date: 20081010
  Serious: No
  Sender: FDA-Public Use
  Company Number: US-ASTRAZENECA-2007UW28454

PATIENT
  Age: 25 Year
  Sex: Female

DRUGS (4)
  1. ZOMIG [Suspect]
     Indication: MIGRAINE
     Route: 048
  2. ORTHO CYCLEN-21 [Concomitant]
  3. ACYCLOVIR [Concomitant]
  4. ALEVE [Concomitant]

REACTIONS (2)
  - FEELING ABNORMAL [None]
  - PAIN IN EXTREMITY [None]
